FAERS Safety Report 6559344-X (Version None)
Quarter: 2010Q1

REPORT INFORMATION
  Report Type: 
  Country: None (occurrence: None)
  Receive Date: 20100129
  Receipt Date: 20090902
  Transmission Date: 20100710
  Serious: No
  Sender: FDA-Public Use
  Company Number: US-ABBOTT-09P-163-0594995-00

PATIENT
  Sex: Female

DRUGS (5)
  1. HUMIRA [Suspect]
     Indication: CROHN'S DISEASE
     Dates: start: 20090708
  2. COLAZAL [Concomitant]
     Indication: DRUG USE FOR UNKNOWN INDICATION
  3. MERCAPTOPURINE [Concomitant]
     Indication: DRUG USE FOR UNKNOWN INDICATION
  4. ROWASA ENEMAS [Concomitant]
     Indication: DRUG USE FOR UNKNOWN INDICATION
  5. PREDNISONE [Concomitant]
     Indication: DRUG USE FOR UNKNOWN INDICATION

REACTIONS (1)
  - INJECTION SITE PAIN [None]
